FAERS Safety Report 16057739 (Version 5)
Quarter: 2019Q4

REPORT INFORMATION
  Report Type: Report from Study
  Country: None (occurrence: US)
  Receive Date: 20190311
  Receipt Date: 20191018
  Transmission Date: 20200122
  Serious: Yes (Other)
  Sender: FDA-Public Use
  Company Number: US-ABBVIE-19K-163-2697469-00

PATIENT
  Sex: Female
  Weight: 59.02 kg

DRUGS (9)
  1. VITAMIN B12 [Concomitant]
     Active Substance: CYANOCOBALAMIN
     Indication: VITAMIN B12 DEFICIENCY
  2. ASPIRIN. [Concomitant]
     Active Substance: ASPIRIN
     Indication: PLAGUE
  3. FOLIC ACID. [Concomitant]
     Active Substance: FOLIC ACID
     Indication: PRODUCT USED FOR UNKNOWN INDICATION
     Dosage: NEEDED
  4. HUMIRA [Suspect]
     Active Substance: ADALIMUMAB
     Route: 058
  5. ATORVASTATIN [Concomitant]
     Active Substance: ATORVASTATIN
     Indication: BLOOD CHOLESTEROL
  6. METOPROL XL [Concomitant]
     Indication: HEART RATE ABNORMAL
  7. PROTONIL [Concomitant]
     Indication: GASTROOESOPHAGEAL REFLUX DISEASE
  8. HUMIRA [Suspect]
     Active Substance: ADALIMUMAB
     Indication: CROHN^S DISEASE
     Route: 058
  9. SYNTHROID [Concomitant]
     Active Substance: LEVOTHYROXINE SODIUM
     Indication: HYPOTHYROIDISM

REACTIONS (6)
  - Arterial occlusive disease [Unknown]
  - Large intestinal ulcer [Unknown]
  - Crohn^s disease [Not Recovered/Not Resolved]
  - Small intestinal stenosis [Unknown]
  - Discomfort [Unknown]
  - Muscle spasms [Unknown]

NARRATIVE: CASE EVENT DATE: 2018
